FAERS Safety Report 11617912 (Version 1)
Quarter: 2015Q4

REPORT INFORMATION
  Report Type: Spontaneous
  Country: LV (occurrence: US)
  Receive Date: 20151009
  Receipt Date: 20151009
  Transmission Date: 20160304
  Serious: Yes (Death, Life-Threatening, Hospitalization, Disabling, Other)
  Sender: FDA-Public Use
  Company Number: US-KADMON PHARMACEUTICALS, LLC-KAD201510-003472

PATIENT
  Age: 65 Year
  Sex: Male

DRUGS (7)
  1. NOLIPREL; BI PREDONIUM [Concomitant]
     Indication: HYPERTENSION
     Route: 048
     Dates: start: 20150309, end: 20150329
  2. EXVIERA 250 MG [Suspect]
     Active Substance: DASABUVIR
     Indication: HEPATIC CIRRHOSIS
  3. VIEKIRAX [Suspect]
     Active Substance: OMBITASVIR\PARITAPREVIR\RITONAVIR
     Indication: CHRONIC HEPATITIS C
     Dosage: TABLET
     Route: 048
     Dates: start: 20150803, end: 20150929
  4. VIEKIRAX [Suspect]
     Active Substance: OMBITASVIR\PARITAPREVIR\RITONAVIR
     Indication: HEPATIC CIRRHOSIS
  5. RIBAVIRIN 600 MG TABLETS [Suspect]
     Active Substance: RIBAVIRIN
     Indication: HEPATIC CIRRHOSIS
  6. EXVIERA 250 MG [Suspect]
     Active Substance: DASABUVIR
     Indication: CHRONIC HEPATITIS C
     Dosage: TABLET
     Route: 048
     Dates: start: 20150803, end: 20150929
  7. RIBAVIRIN 600 MG TABLETS [Suspect]
     Active Substance: RIBAVIRIN
     Indication: CHRONIC HEPATITIS C
     Route: 048
     Dates: start: 20150803, end: 20150929

REACTIONS (9)
  - Gastric ulcer haemorrhage [Fatal]
  - Haemorrhagic anaemia [Fatal]
  - Decreased appetite [Unknown]
  - Shock [Fatal]
  - Prothrombin time shortened [Unknown]
  - Gastric neoplasm [Unknown]
  - Hepatic cirrhosis [Fatal]
  - Blood bilirubin increased [Unknown]
  - Condition aggravated [Unknown]

NARRATIVE: CASE EVENT DATE: 20150919
